FAERS Safety Report 17593518 (Version 1)
Quarter: 2020Q1

REPORT INFORMATION
  Report Type: Spontaneous
  Country: US (occurrence: US)
  Receive Date: 20200327
  Receipt Date: 20200327
  Transmission Date: 20200409
  Serious: No
  Sender: FDA-Public Use
  Company Number: US-PFIZER INC-2020123041

PATIENT
  Age: 79 Year
  Sex: Female
  Weight: 87.54 kg

DRUGS (1)
  1. PREMARIN [Suspect]
     Active Substance: ESTROGENS, CONJUGATED
     Indication: VULVOVAGINAL PRURITUS
     Dosage: UNK (0.5 ON THE TUBE, THE SMALLEST DOSE)
     Dates: start: 20200313

REACTIONS (1)
  - Drug ineffective [Unknown]
